FAERS Safety Report 4798425-8 (Version None)
Quarter: 2005Q4

REPORT INFORMATION
  Report Type: 
  Country: None (occurrence: None)
  Receive Date: 20051014
  Receipt Date: 20050728
  Transmission Date: 20060501
  Serious: Yes (Hospitalization)
  Sender: FDA-Public Use
  Company Number: 200512212JP

PATIENT
  Age: 21 Year
  Sex: Female

DRUGS (10)
  1. LANTUS [Suspect]
     Route: 058
  2. OPTIPEN (INSULIN PUMP) [Suspect]
  3. ANAFRANIL [Concomitant]
     Route: 048
  4. MELLARIL [Concomitant]
     Route: 048
  5. ROHYPNOL [Concomitant]
     Route: 048
  6. VEGETAMIN [Concomitant]
     Route: 048
  7. ERIMIN [Concomitant]
     Route: 048
  8. ETISEDAN [Concomitant]
     Route: 048
  9. PROGRAF [Concomitant]
  10. RAPAMUNE [Concomitant]

REACTIONS (1)
  - SUICIDE ATTEMPT [None]
